FAERS Safety Report 23876565 (Version 5)
Quarter: 2025Q3

REPORT INFORMATION
  Report Type: Spontaneous
  Country: EU (occurrence: EU)
  Receive Date: 20240521
  Receipt Date: 20250730
  Transmission Date: 20251021
  Serious: Yes (Hospitalization)
  Sender: ROCHE
  Company Number: EU-ROCHE-3563024

PATIENT
  Age: 65 Year
  Sex: Male
  Weight: 80 kg

DRUGS (2)
  1. AVASTIN [Suspect]
     Active Substance: BEVACIZUMAB
     Indication: Diabetic retinal oedema
     Dosage: 3 INJECTIONS MONTHLY
     Route: 050
     Dates: start: 201607, end: 201609
  2. VABYSMO [Suspect]
     Active Substance: FARICIMAB-SVOA
     Indication: Diabetic retinal oedema
     Route: 065
     Dates: start: 20230414, end: 20231211

REACTIONS (10)
  - Cystoid macular oedema [Unknown]
  - Toxic anterior segment syndrome [Unknown]
  - Iridocyclitis [Recovered/Resolved]
  - Iritis [Recovered/Resolved]
  - Vitritis [Recovered/Resolved]
  - Uveitis [Recovered/Resolved]
  - Anterior chamber inflammation [Unknown]
  - Intraocular pressure increased [Unknown]
  - Off label use [Unknown]
  - Off label use [Unknown]

NARRATIVE: CASE EVENT DATE: 20230919
